FAERS Safety Report 25417644 (Version 1)
Quarter: 2025Q2

REPORT INFORMATION
  Report Type: Spontaneous
  Country: US (occurrence: None)
  Receive Date: 20250609
  Receipt Date: 20250609
  Transmission Date: 20250717
  Serious: Yes (unspecified)
  Sender: FDA-CTU
  Company Number: None

PATIENT
  Age: 46 Year
  Sex: Female
  Weight: 63 kg

DRUGS (3)
  1. DESVENLAFAXINE SUCCINATE [Suspect]
     Active Substance: DESVENLAFAXINE SUCCINATE
     Indication: Depression
     Route: 048
     Dates: start: 20100602
  2. Pristiq 25 mg [Concomitant]
  3. Daily mutivitamin [Concomitant]

REACTIONS (2)
  - Drug withdrawal syndrome [None]
  - Wrong technique in product usage process [None]

NARRATIVE: CASE EVENT DATE: 20250401
